FAERS Safety Report 25320359 (Version 2)
Quarter: 2025Q2

REPORT INFORMATION
  Report Type: Spontaneous
  Country: BE (occurrence: BE)
  Receive Date: 20250515
  Receipt Date: 20250530
  Transmission Date: 20250716
  Serious: Yes (Other)
  Sender: MERCK SHARP & DOHME LLC
  Company Number: BE-009507513-2284303

PATIENT
  Age: 70 Year
  Sex: Female

DRUGS (6)
  1. PEMBROLIZUMAB [Suspect]
     Active Substance: PEMBROLIZUMAB
     Indication: Non-small cell lung cancer
     Dates: start: 202405, end: 2024
  2. PEMBROLIZUMAB [Suspect]
     Active Substance: PEMBROLIZUMAB
     Indication: Non-small cell lung cancer
     Dates: start: 202408, end: 202505
  3. ATENOLOL [Concomitant]
     Active Substance: ATENOLOL
  4. SIMVASTATIN [Concomitant]
     Active Substance: SIMVASTATIN
  5. GEMCITABINE [Suspect]
     Active Substance: GEMCITABINE
     Indication: Non-small cell lung cancer
     Dates: start: 202405
  6. CISPLATIN [Suspect]
     Active Substance: CISPLATIN
     Indication: Non-small cell lung cancer
     Dates: start: 202405

REACTIONS (10)
  - Polyserositis [Unknown]
  - Necrosis [Unknown]
  - Weight increased [Recovering/Resolving]
  - General physical health deterioration [Unknown]
  - Oedema peripheral [Recovering/Resolving]
  - Pericardial effusion [Unknown]
  - Pleural effusion [Unknown]
  - Ascites [Unknown]
  - Infrequent bowel movements [Unknown]
  - Enteritis [Unknown]

NARRATIVE: CASE EVENT DATE: 20240701
